FAERS Safety Report 4900254-9 (Version None)
Quarter: 2006Q1

REPORT INFORMATION
  Report Type: 
  Country: None (occurrence: None)
  Receive Date: 20060201
  Receipt Date: 20060119
  Transmission Date: 20060701
  Serious: Yes (Other)
  Sender: FDA-Public Use
  Company Number: 2006011787

PATIENT
  Sex: Female

DRUGS (7)
  1. PROVERA [Suspect]
     Indication: HORMONE REPLACEMENT THERAPY
     Dosage: ORAL
     Route: 048
     Dates: start: 19811001, end: 20010101
  2. PREMPRO [Suspect]
     Indication: HORMONE REPLACEMENT THERAPY
     Dates: start: 19811001, end: 20010101
  3. PREMARIN [Suspect]
     Indication: HORMONE REPLACEMENT THERAPY
     Dates: start: 19811001, end: 20010101
  4. ESTRADIOL [Suspect]
     Indication: HORMONE REPLACEMENT THERAPY
     Dates: start: 19811001, end: 20010101
  5. ESTRONE [Suspect]
     Indication: HORMONE REPLACEMENT THERAPY
     Dates: start: 19811001, end: 20010101
  6. TESTOSTERONE [Suspect]
     Indication: HORMONE REPLACEMENT THERAPY
     Dates: start: 19811001, end: 20010101
  7. ESTROGENS (ESTROGENS) [Suspect]
     Indication: HORMONE REPLACEMENT THERAPY
     Dates: start: 19811001, end: 20010101

REACTIONS (1)
  - BREAST CANCER FEMALE [None]
